FAERS Safety Report 17915575 (Version 1)
Quarter: 2020Q2

REPORT INFORMATION
  Report Type: Spontaneous
  Country: US (occurrence: US)
  Receive Date: 20200619
  Receipt Date: 20200619
  Transmission Date: 20200714
  Serious: Yes (Other)
  Sender: FDA-Public Use
  Company Number: US-QILU PHARMACEUTICAL CO.LTD.-QLU-000162-2020

PATIENT
  Age: 26 Year
  Sex: Female

DRUGS (4)
  1. TEMOZOLOMIDE. [Concomitant]
     Active Substance: TEMOZOLOMIDE
     Indication: EWING-LIKE SARCOMA
     Dosage: UNK
     Route: 065
  2. TEMOZOLOMIDE. [Concomitant]
     Active Substance: TEMOZOLOMIDE
     Indication: METASTASES TO LUNG
  3. IRINOTECAN-HYDROCHLORIDE [Suspect]
     Active Substance: IRINOTECAN HYDROCHLORIDE
     Indication: METASTASES TO LUNG
  4. IRINOTECAN-HYDROCHLORIDE [Suspect]
     Active Substance: IRINOTECAN HYDROCHLORIDE
     Indication: EWING-LIKE SARCOMA
     Dosage: UNK
     Route: 065

REACTIONS (3)
  - Sinus arrest [Recovered/Resolved]
  - Bradycardia [Recovered/Resolved]
  - Product use in unapproved indication [Recovered/Resolved]
